FAERS Safety Report 5249416-4 (Version None)
Quarter: 2007Q1

REPORT INFORMATION
  Report Type: 
  Country: None (occurrence: None)
  Receive Date: 20070228
  Receipt Date: 20061012
  Transmission Date: 20070707
  Serious: No
  Sender: FDA-Public Use
  Company Number: US-GLAXOSMITHKLINE-A0623570A

PATIENT
  Age: 50 Year
  Sex: Female

DRUGS (5)
  1. VALTREX [Suspect]
     Dosage: 500MG PER DAY
     Route: 048
     Dates: start: 20060701
  2. XANAX [Concomitant]
  3. VICODIN [Concomitant]
  4. MOTRIN [Concomitant]
  5. HERBS [Concomitant]

REACTIONS (4)
  - GINGIVAL PAIN [None]
  - GLOSSODYNIA [None]
  - PARAESTHESIA ORAL [None]
  - TONGUE DISCOLOURATION [None]
